FAERS Safety Report 11219956 (Version 2)
Quarter: 2015Q3

REPORT INFORMATION
  Report Type: Spontaneous
  Country: US (occurrence: US)
  Receive Date: 20150625
  Receipt Date: 20150707
  Transmission Date: 20151125
  Serious: No
  Sender: FDA-Public Use
  Company Number: US-009507513-1506USA013002

PATIENT
  Sex: Female

DRUGS (1)
  1. IMPLANON [Suspect]
     Active Substance: ETONOGESTREL
     Indication: CONTRACEPTION
     Dosage: UNK
     Route: 059
     Dates: start: 2010

REACTIONS (4)
  - Medical device complication [Not Recovered/Not Resolved]
  - Weight increased [Unknown]
  - Device deployment issue [Unknown]
  - Medical device complication [Not Recovered/Not Resolved]

NARRATIVE: CASE EVENT DATE: 2010
